FAERS Safety Report 9792072 (Version 1)
Quarter: 2014Q1

REPORT INFORMATION
  Report Type: Spontaneous
  Country: US (occurrence: US)
  Receive Date: 20140102
  Receipt Date: 20140102
  Transmission Date: 20141002
  Serious: Yes (Hospitalization, Other)
  Sender: FDA-Public Use
  Company Number: US-BAYER-2013-158046

PATIENT
  Age: 18 Year
  Sex: Female

DRUGS (3)
  1. YAZ [Suspect]
     Indication: CONTRACEPTION
  2. YASMIN [Suspect]
     Indication: CONTRACEPTION
  3. OCELLA [Suspect]
     Indication: CONTRACEPTION

REACTIONS (10)
  - Cholecystitis [None]
  - Gallbladder disorder [None]
  - Injury [None]
  - Nervous system disorder [None]
  - Pain [None]
  - Shock [None]
  - Anxiety [None]
  - Pain [None]
  - Asthenia [None]
  - Decreased activity [None]
